FAERS Safety Report 7851640-9 (Version None)
Quarter: 2011Q4

REPORT INFORMATION
  Report Type: 
  Country: None (occurrence: None)
  Receive Date: 20111026
  Receipt Date: 20111014
  Transmission Date: 20120403
  Serious: Yes (Other)
  Sender: FDA-Public Use
  Company Number: PHHY2011NL91437

PATIENT
  Age: 78 Year
  Sex: Male
  Weight: 112 kg

DRUGS (4)
  1. ALISKIREN [Suspect]
  2. ANGIOTENSIN II ANTAGONISTS [Concomitant]
  3. DIURETICS [Concomitant]
  4. DIOVAN [Concomitant]
     Dosage: 80 MG, UNK

REACTIONS (2)
  - LIP AND/OR ORAL CAVITY CANCER [None]
  - BLOOD PRESSURE INCREASED [None]
